FAERS Safety Report 8954153 (Version 1)
Quarter: 2012Q4

REPORT INFORMATION
  Report Type: 
  Country: US (occurrence: US)
  Receive Date: 20121207
  Receipt Date: 20121207
  Transmission Date: 20130627
  Serious: Yes (Hospitalization)
  Sender: FDA-Public Use
  Company Number: US-AMGEN-USACT2012078513

PATIENT
  Age: 55 Year
  Sex: Male
  Weight: 99.1 kg

DRUGS (6)
  1. PANITUMUMAB [Suspect]
     Indication: COLORECTAL CANCER METASTATIC
     Dosage: 640 mg, q2wk
     Route: 042
     Dates: start: 20110304, end: 20120326
  2. ERLOTINIB [Concomitant]
     Indication: COLORECTAL CANCER METASTATIC
     Dosage: UNK UNK, qd
     Route: 048
     Dates: start: 20110318
  3. IRINOTECAN [Concomitant]
     Indication: COLORECTAL CANCER METASTATIC
     Dosage: 200 mg, q2wk
     Route: 042
     Dates: start: 20110304, end: 20110326
  4. IMODIUM A-D [Concomitant]
     Route: 048
  5. NORCO [Concomitant]
     Indication: COLORECTAL CANCER METASTATIC
     Dosage: 10 mg, prn
     Route: 048
  6. OXYCODONE [Concomitant]
     Dosage: 10 mg, UNK

REACTIONS (2)
  - Small intestinal obstruction [Unknown]
  - White blood cell count decreased [Unknown]
